FAERS Safety Report 9843544 (Version 1)
Quarter: 2013Q4

REPORT INFORMATION
  Report Type: Spontaneous
  Country: US (occurrence: None)
  Receive Date: 20131223
  Receipt Date: 20131223
  Transmission Date: 20140711
  Serious: No
  Sender: FDA-Public Use
  Company Number: 219366LEO

PATIENT
  Age: 38 Year
  Sex: Female

DRUGS (1)
  1. PICATO GEL [Suspect]
     Indication: PRODUCT USED FOR UNKNOWN INDICATION
     Dosage: TOPICAL
     Route: 061

REACTIONS (3)
  - Blister [None]
  - Thermal burn [None]
  - Incorrect drug administration duration [None]
